FAERS Safety Report 5935993-4 (Version None)
Quarter: 2008Q4

REPORT INFORMATION
  Report Type: 
  Country: None (occurrence: None)
  Receive Date: 20081030
  Receipt Date: 20080623
  Transmission Date: 20090506
  Serious: Yes (Death, Life-Threatening)
  Sender: FDA-Public Use
  Company Number: PHHY2008NL11724

PATIENT
  Sex: Female

DRUGS (11)
  1. DIOVAN [Suspect]
     Indication: HYPERTENSION
     Dosage: 80 MG, DAILY
  2. BACLOFEN [Suspect]
     Dosage: 10 MG, TID
     Dates: start: 20080131
  3. HYDROCHLOROTHIAZIDE [Suspect]
     Indication: HYPERTENSION
     Dosage: 25 MG, DAILY
  4. RIVOTRIL [Suspect]
     Dosage: 0.5 MG
  5. AMITRIPTYLINE HCL [Suspect]
     Indication: DEPRESSION
     Dosage: 10 MG, TID2SDO
     Dates: start: 20080114
  6. AMITRIPTYLINE HCL [Suspect]
     Dosage: 25 MG, QD
  7. SAROTEX RETARD [Suspect]
     Indication: DEPRESSION
     Dosage: 25 MG, QD
  8. TRANSTEC [Suspect]
     Indication: PAIN
     Dosage: 20 MG(ONCE DAILY 0.5 PATCH)
     Dates: start: 20080220
  9. AMLODIPINE [Suspect]
     Indication: HYPERTENSION
     Dosage: 5 MG, DAILY
  10. SELOKEEN [Suspect]
     Indication: HYPERTENSION
     Dosage: 100 MG, QD
  11. ZOFRAN [Suspect]
     Dosage: 2ML AMPOULE ONCE DAILY
     Dates: start: 20080222

REACTIONS (1)
  - COMA [None]
